FAERS Safety Report 12078854 (Version 12)
Quarter: 2017Q1

REPORT INFORMATION
  Report Type: Report from Study
  Country: IL (occurrence: IL)
  Receive Date: 20160216
  Receipt Date: 20170315
  Transmission Date: 20170428
  Serious: Yes (Other)
  Sender: FDA-Public Use
  Company Number: PHHY2013IL019304

PATIENT
  Age: 46 Year
  Sex: Female
  Weight: 54 kg

DRUGS (2)
  1. TASIGNA [Suspect]
     Active Substance: NILOTINIB
     Indication: CHRONIC MYELOID LEUKAEMIA
     Dosage: 300 MG, BID
     Route: 048
     Dates: start: 20120520
  2. TASIGNA [Suspect]
     Active Substance: NILOTINIB
     Dosage: 450 MG, QD (300 MG IN PM AND 150 MG IN AM)
     Route: 048
     Dates: start: 20150908

REACTIONS (72)
  - Fall [Not Recovered/Not Resolved]
  - Amenorrhoea [Not Recovered/Not Resolved]
  - Memory impairment [Not Recovered/Not Resolved]
  - Productive cough [Recovering/Resolving]
  - Headache [Not Recovered/Not Resolved]
  - Back pain [Not Recovered/Not Resolved]
  - Tendonitis [Not Recovered/Not Resolved]
  - Rhinorrhoea [Not Recovered/Not Resolved]
  - Intervertebral disc protrusion [Not Recovered/Not Resolved]
  - Insomnia [Not Recovered/Not Resolved]
  - High density lipoprotein increased [Not Recovered/Not Resolved]
  - Arthralgia [Not Recovered/Not Resolved]
  - Pyrexia [Recovered/Resolved]
  - Hypoaesthesia [Not Recovered/Not Resolved]
  - Eye irritation [Not Recovered/Not Resolved]
  - Cough [Recovering/Resolving]
  - Decreased appetite [Recovering/Resolving]
  - Varicose vein [Unknown]
  - Lip haemorrhage [Not Recovered/Not Resolved]
  - Fatigue [Unknown]
  - Dysphonia [Unknown]
  - Mouth ulceration [Not Recovered/Not Resolved]
  - Abdominal pain lower [Not Recovered/Not Resolved]
  - Blood glucose increased [Not Recovered/Not Resolved]
  - Vomiting [Recovered/Resolved]
  - Pyrexia [Recovered/Resolved]
  - Prescribed underdose [Unknown]
  - Ageusia [Not Recovered/Not Resolved]
  - Pigmentation disorder [Unknown]
  - Mouth injury [Recovered/Resolved]
  - Bone density decreased [Unknown]
  - Nasopharyngitis [Recovered/Resolved]
  - Contusion [Not Recovered/Not Resolved]
  - Flushing [Not Recovered/Not Resolved]
  - Gingival pain [Not Recovered/Not Resolved]
  - Muscle spasms [Not Recovered/Not Resolved]
  - Bone pain [Not Recovered/Not Resolved]
  - Stomatitis [Not Recovered/Not Resolved]
  - Oral pain [Unknown]
  - Apnoea [Not Recovered/Not Resolved]
  - Dysphagia [Not Recovered/Not Resolved]
  - Tongue ulceration [Not Recovered/Not Resolved]
  - Eye pruritus [Unknown]
  - Pruritus generalised [Not Recovered/Not Resolved]
  - Constipation [Not Recovered/Not Resolved]
  - Toothache [Unknown]
  - Pelvic pain [Not Recovered/Not Resolved]
  - Influenza [Unknown]
  - Chest pain [Recovering/Resolving]
  - Blood cholesterol increased [Unknown]
  - Joint swelling [Not Recovered/Not Resolved]
  - Myalgia [Not Recovered/Not Resolved]
  - Blood bilirubin increased [Unknown]
  - Oropharyngeal pain [Recovered/Resolved]
  - Musculoskeletal pain [Recovering/Resolving]
  - Anxiety [Not Recovered/Not Resolved]
  - Inflammation [Recovered/Resolved]
  - Initial insomnia [Unknown]
  - Glossodynia [Not Recovered/Not Resolved]
  - Oropharyngeal pain [Not Recovered/Not Resolved]
  - Amnesia [Not Recovered/Not Resolved]
  - Throat irritation [Not Recovered/Not Resolved]
  - Pharyngitis [Recovering/Resolving]
  - Tongue disorder [Not Recovered/Not Resolved]
  - Lip injury [Unknown]
  - Thirst [Unknown]
  - Oral discomfort [Not Recovered/Not Resolved]
  - Polymerase chain reaction positive [Not Recovered/Not Resolved]
  - Pain in extremity [Not Recovered/Not Resolved]
  - Oropharyngeal pain [Recovered/Resolved]
  - Pruritus [Not Recovered/Not Resolved]
  - Arthralgia [Recovered/Resolved]

NARRATIVE: CASE EVENT DATE: 20130913
